FAERS Safety Report 5480391-3 (Version None)
Quarter: 2007Q4

REPORT INFORMATION
  Report Type: 
  Country: None (occurrence: None)
  Receive Date: 20071009
  Receipt Date: 20071004
  Transmission Date: 20080405
  Serious: Yes (Other)
  Sender: FDA-Public Use
  Company Number: US-MERCK-0710USA01273

PATIENT
  Sex: Female

DRUGS (1)
  1. VYTORIN [Suspect]
     Route: 048

REACTIONS (3)
  - CONVULSION [None]
  - HEADACHE [None]
  - MYALGIA [None]
